FAERS Safety Report 5286183-2 (Version None)
Quarter: 2007Q1

REPORT INFORMATION
  Report Type: 
  Country: None (occurrence: None)
  Receive Date: 20070116
  Receipt Date: 20061110
  Transmission Date: 20070707
  Serious: No
  Sender: FDA-Public Use
  Company Number: 2006SP003995

PATIENT
  Age: 63 Year
  Sex: Female
  Weight: 58.9676 kg

DRUGS (6)
  1. LUNESTA [Suspect]
     Indication: INSOMNIA
     Dosage: 2 MG;ORAL
     Route: 048
     Dates: start: 20061109
  2. VICODIN [Concomitant]
  3. ADVIL [Concomitant]
  4. DIPHENHYDRAMINE, COMBINATIONS [Concomitant]
  5. PANTOPRAZOLE [Concomitant]
  6. ALBUTEROL [Concomitant]

REACTIONS (3)
  - HEADACHE [None]
  - INITIAL INSOMNIA [None]
  - NECK PAIN [None]
